FAERS Safety Report 6302369-X (Version None)
Quarter: 2009Q3

REPORT INFORMATION
  Report Type: 
  Country: None (occurrence: None)
  Receive Date: 20090810
  Receipt Date: 20090727
  Transmission Date: 20100115
  Serious: Yes (Hospitalization, Other)
  Sender: FDA-Public Use
  Company Number: PHHY2009FR31288

PATIENT
  Sex: Male

DRUGS (1)
  1. CGP 57148B T35717+ [Suspect]
     Indication: CHRONIC MYELOID LEUKAEMIA
     Route: 065

REACTIONS (7)
  - BENIGN PROSTATIC HYPERPLASIA [None]
  - CHEST PAIN [None]
  - GASTRIC POLYPS [None]
  - GASTRITIS [None]
  - HYPERTONIC BLADDER [None]
  - OESOPHAGITIS [None]
  - SUPRAVENTRICULAR EXTRASYSTOLES [None]
